FAERS Safety Report 13725440 (Version 1)
Quarter: 2017Q3

REPORT INFORMATION
  Report Type: Spontaneous
  Country: US (occurrence: US)
  Receive Date: 20170707
  Receipt Date: 20170707
  Transmission Date: 20171127
  Serious: Yes (Hospitalization, Other)
  Sender: FDA-Public Use
  Company Number: US-TEVA-785438USA

PATIENT
  Age: 67 Year
  Sex: Male

DRUGS (37)
  1. DICYCLOMINE [Concomitant]
     Active Substance: DICYCLOMINE HYDROCHLORIDE
  2. FLONASE [Concomitant]
     Active Substance: FLUTICASONE PROPIONATE
  3. LASIX [Concomitant]
     Active Substance: FUROSEMIDE
  4. LISINOPRIL. [Concomitant]
     Active Substance: LISINOPRIL
  5. BRILINTA [Concomitant]
     Active Substance: TICAGRELOR
  6. PEPCID [Concomitant]
     Active Substance: FAMOTIDINE
  7. POTASSIUM [Concomitant]
     Active Substance: POTASSIUM
  8. ASPIRIN. [Concomitant]
     Active Substance: ASPIRIN
  9. AFRIN [Concomitant]
     Active Substance: OXYMETAZOLINE
  10. ONDANSETRON [Concomitant]
     Active Substance: ONDANSETRON
  11. COUMADIN [Concomitant]
     Active Substance: WARFARIN SODIUM
  12. TRADJENTA [Concomitant]
     Active Substance: LINAGLIPTIN
  13. PROBIOTIC [Concomitant]
     Active Substance: PROBIOTICS NOS
  14. AZITHROMYCIN ANHYDROUS. [Concomitant]
     Active Substance: AZITHROMYCIN ANHYDROUS
  15. MUCINEX [Concomitant]
     Active Substance: GUAIFENESIN
  16. JUVEN [Concomitant]
     Active Substance: .BETA.-HYDROXYISOVALERIC ACID\ARGININE\GLUTAMINE
  17. BUMEX [Concomitant]
     Active Substance: BUMETANIDE
  18. PLAVIX [Concomitant]
     Active Substance: CLOPIDOGREL BISULFATE
  19. METOPROLOL TARTRATE. [Concomitant]
     Active Substance: METOPROLOL TARTRATE
  20. WARFARIN [Suspect]
     Active Substance: WARFARIN
     Route: 065
  21. FLOMAX [Concomitant]
     Active Substance: TAMSULOSIN HYDROCHLORIDE
  22. FOLIC ACID. [Concomitant]
     Active Substance: FOLIC ACID
  23. PROTONIX [Concomitant]
     Active Substance: PANTOPRAZOLE SODIUM
  24. CETIRIZINE [Concomitant]
     Active Substance: CETIRIZINE HYDROCHLORIDE
  25. DIGOXIN. [Concomitant]
     Active Substance: DIGOXIN
  26. FUROSEMIDE. [Concomitant]
     Active Substance: FUROSEMIDE
  27. FLUOXETINE HYDROCHLORIDE. [Concomitant]
     Active Substance: FLUOXETINE HYDROCHLORIDE
  28. TRUBIOTICS ONE A DAY [Concomitant]
     Active Substance: BIFIDOBACTERIUM LONGUM\LACTOBACILLUS ACIDOPHILUS
  29. METOLAZONE. [Concomitant]
     Active Substance: METOLAZONE
  30. SPIRONOLACTONE. [Concomitant]
     Active Substance: SPIRONOLACTONE
  31. FLUOXETINE [Suspect]
     Active Substance: FLUOXETINE HYDROCHLORIDE
     Route: 065
  32. IRON [Concomitant]
     Active Substance: IRON
  33. MVI [Concomitant]
     Active Substance: VITAMINS
  34. SYNTHROID [Concomitant]
     Active Substance: LEVOTHYROXINE SODIUM
  35. HYDROCODONE [Concomitant]
     Active Substance: HYDROCODONE
  36. VANCOMYCIN [Concomitant]
     Active Substance: VANCOMYCIN
  37. ATORVASTATIN CALCIUM. [Concomitant]
     Active Substance: ATORVASTATIN CALCIUM

REACTIONS (2)
  - Intestinal obstruction [Unknown]
  - Strangulated hernia [Unknown]

NARRATIVE: CASE EVENT DATE: 20170603
